FAERS Safety Report 23394622 (Version 2)
Quarter: 2024Q3

REPORT INFORMATION
  Report Type: Other
  Country: CA (occurrence: CA)
  Receive Date: 20240112
  Receipt Date: 20240710
  Transmission Date: 20241017
  Serious: No
  Sender: TOLMAR
  Company Number: CA-TOLMAR, INC.-23CA045628

PATIENT
  Age: 75 Year
  Sex: Male

DRUGS (4)
  1. ELIGARD [Suspect]
     Active Substance: LEUPROLIDE ACETATE
     Indication: Prostate cancer
     Dosage: 45 MILLIGRAM, Q 6 MONTH
     Route: 058
     Dates: start: 20231219
  2. ELIGARD [Suspect]
     Active Substance: LEUPROLIDE ACETATE
     Dosage: 45 MILLIGRAM, Q 6 MONTH
     Route: 058
     Dates: start: 20240604
  3. ELIGARD [Suspect]
     Active Substance: LEUPROLIDE ACETATE
     Indication: Prostate cancer
     Dosage: UNK
  4. RADIATION THERAPY [Concomitant]
     Active Substance: RADIATION THERAPY
     Indication: Prostate cancer
     Dosage: UNK
     Dates: start: 20240406, end: 202405

REACTIONS (5)
  - Injection site pain [Recovered/Resolved]
  - Hot flush [Unknown]
  - Hyperhidrosis [Unknown]
  - Nocturia [Unknown]
  - Fatigue [Unknown]

NARRATIVE: CASE EVENT DATE: 20231219
